FAERS Safety Report 11703453 (Version 1)
Quarter: 2015Q4

REPORT INFORMATION
  Report Type: Spontaneous
  Country: US (occurrence: US)
  Receive Date: 20151105
  Receipt Date: 20151105
  Transmission Date: 20160304
  Serious: No
  Sender: FDA-Public Use
  Company Number: US-ANACOR-2015ANA00121

PATIENT
  Age: 54 Year
  Sex: Female
  Weight: 71.66 kg

DRUGS (3)
  1. KERYDIN [Suspect]
     Active Substance: TAVABOROLE
     Indication: ONYCHOMYCOSIS
     Dosage: 1 GTT, 1X/DAY
     Route: 061
     Dates: start: 20150412, end: 20150729
  2. KERYDIN [Suspect]
     Active Substance: TAVABOROLE
     Dosage: 1 GTT, 1X/DAY
     Route: 061
     Dates: start: 20150821, end: 20150822
  3. SYNTHROID [Concomitant]
     Active Substance: LEVOTHYROXINE SODIUM

REACTIONS (3)
  - Application site vesicles [Recovering/Resolving]
  - Application site exfoliation [Recovering/Resolving]
  - Application site erythema [Recovering/Resolving]

NARRATIVE: CASE EVENT DATE: 2015
